FAERS Safety Report 10608576 (Version 9)
Quarter: 2016Q4

REPORT INFORMATION
  Report Type: Report from Study
  Country: US (occurrence: US)
  Receive Date: 20141125
  Receipt Date: 20161010
  Transmission Date: 20170206
  Serious: Yes (Life-Threatening, Hospitalization, Disabling)
  Sender: FDA-Public Use
  Company Number: US-ACTELION-A-US2014-108662

PATIENT
  Age: 84 Year
  Sex: Female

DRUGS (5)
  1. OPSUMIT [Suspect]
     Active Substance: MACITENTAN
     Indication: PULMONARY FIBROSIS
  2. ADCIRCA [Concomitant]
     Active Substance: TADALAFIL
     Indication: PULMONARY HYPERTENSION
  3. BRIMONIDINE [Concomitant]
     Active Substance: BRIMONIDINE TARTRATE
  4. OPSUMIT [Suspect]
     Active Substance: MACITENTAN
     Indication: PULMONARY ARTERIAL HYPERTENSION
     Dosage: 10 MG, QD
     Route: 048
     Dates: start: 20140731
  5. ALBUTEROL. [Concomitant]
     Active Substance: ALBUTEROL

REACTIONS (15)
  - Respiratory failure [Recovering/Resolving]
  - Dyspnoea [Not Recovered/Not Resolved]
  - Pneumonia [Recovering/Resolving]
  - Nasal congestion [Recovering/Resolving]
  - Pulmonary hypertension [Not Recovered/Not Resolved]
  - Drug dose omission [Not Recovered/Not Resolved]
  - Increased upper airway secretion [Not Recovered/Not Resolved]
  - Rhinorrhoea [Recovering/Resolving]
  - Anxiety [Recovered/Resolved]
  - Productive cough [Not Recovered/Not Resolved]
  - Unevaluable event [Not Recovered/Not Resolved]
  - Cardiac arrest [Recovered/Resolved]
  - Pulmonary fibrosis [Not Recovered/Not Resolved]
  - Device related infection [Unknown]
  - Fatigue [Unknown]

NARRATIVE: CASE EVENT DATE: 201408
